FAERS Safety Report 8778612 (Version 4)
Quarter: 2013Q1

REPORT INFORMATION
  Report Type: Report from Study
  Country: CA (occurrence: CA)
  Receive Date: 20120912
  Receipt Date: 20130226
  Transmission Date: 20140127
  Serious: Yes (Other)
  Sender: FDA-Public Use
  Company Number: CA-JNJFOC-20120903205

PATIENT
  Age: 78 Year
  Sex: Female
  Weight: 95 kg

DRUGS (4)
  1. STELARA [Suspect]
     Indication: PSORIASIS
     Route: 058
     Dates: start: 20120220, end: 201206
  2. HYDROCHLOROTHIAZIDE [Concomitant]
  3. METFORMIN [Concomitant]
  4. SYNTHROID [Concomitant]

REACTIONS (1)
  - Polymyositis [Not Recovered/Not Resolved]
